FAERS Safety Report 9528044 (Version 1)
Quarter: 2013Q1

REPORT INFORMATION
  Report Type: Spontaneous
  Country: US (occurrence: None)
  Receive Date: 20130329
  Receipt Date: 20130329
  Transmission Date: 20140127
  Serious: No
  Sender: FDA-Public Use
  Company Number: 1000042525

PATIENT
  Sex: Female

DRUGS (1)
  1. LINZESS [Suspect]
     Dosage: 145 MCG (145 MCG,1 IN 1 D),ORAL
     Route: 048

REACTIONS (2)
  - Dyspnoea [None]
  - Abdominal distension [None]
